FAERS Safety Report 19442688 (Version 1)
Quarter: 2021Q2

REPORT INFORMATION
  Report Type: Other
  Country: US (occurrence: US)
  Receive Date: 20210621
  Receipt Date: 20210621
  Transmission Date: 20210717
  Serious: No
  Sender: FDA-Public Use
  Company Number: US-ACORDA-ACO_168996_2021

PATIENT
  Age: 76 Year
  Sex: Male

DRUGS (4)
  1. CARBIDOPA/LEVODOPA [Concomitant]
     Active Substance: CARBIDOPA\LEVODOPA
     Indication: PRODUCT USED FOR UNKNOWN INDICATION
     Dosage: 25/100MG: 1?1.5 PILLS 6X/DAY
     Route: 065
  2. GABAPENTIN. [Concomitant]
     Active Substance: GABAPENTIN
     Indication: PRODUCT USED FOR UNKNOWN INDICATION
     Dosage: 1 PILL 3X/DAY
     Route: 065
  3. INBRIJA [Suspect]
     Active Substance: LEVODOPA
     Indication: ON AND OFF PHENOMENON
  4. INBRIJA [Suspect]
     Active Substance: LEVODOPA
     Indication: PARKINSON^S DISEASE
     Dosage: 2 DOSAGE FORM, PRN, DO NOT EXCEED 5 DOSES IN 1 DAY)
     Dates: start: 20210417, end: 20210513

REACTIONS (10)
  - Intentional underdose [Unknown]
  - Hallucination [Unknown]
  - Constipation [Unknown]
  - Urinary retention [Unknown]
  - Dyskinesia [Recovered/Resolved]
  - Dizziness [Recovered/Resolved]
  - Memory impairment [Recovered/Resolved]
  - Condition aggravated [Recovered/Resolved]
  - Blood pressure decreased [Recovered/Resolved]
  - Balance disorder [Recovered/Resolved]

NARRATIVE: CASE EVENT DATE: 20210429
